FAERS Safety Report 11851987 (Version 1)
Quarter: 2015Q4

REPORT INFORMATION
  Report Type: Spontaneous
  Country: US (occurrence: US)
  Receive Date: 20151218
  Receipt Date: 20151218
  Transmission Date: 20160305
  Serious: No
  Sender: FDA-Public Use
  Company Number: US-APOTEX-2015AP006518

PATIENT
  Sex: Female

DRUGS (1)
  1. TERAZOSIN [Suspect]
     Active Substance: TERAZOSIN\TERAZOSIN HYDROCHLORIDE
     Indication: HYPERTENSION
     Dosage: 1 DF, Q.H.S.
     Route: 065

REACTIONS (2)
  - Lacrimation increased [Recovering/Resolving]
  - Vision blurred [Not Recovered/Not Resolved]
